FAERS Safety Report 7431445-3 (Version None)
Quarter: 2011Q2

REPORT INFORMATION
  Report Type: 
  Country: None (occurrence: None)
  Receive Date: 20110422
  Receipt Date: 20110413
  Transmission Date: 20111010
  Serious: Yes (Other)
  Sender: FDA-Public Use
  Company Number: US-ASTRAZENECA-2009SE33236

PATIENT
  Age: 50 Year
  Sex: Male
  Weight: 188.2 kg

DRUGS (24)
  1. SEROQUEL [Suspect]
     Route: 048
     Dates: start: 20040101, end: 20091001
  2. ORPHENADRINE CITRATE [Concomitant]
     Dates: start: 20010105
  3. ATIVAN [Concomitant]
     Dosage: 0.5 MG EVERY 6 HRS AS NEEDED
     Route: 048
     Dates: end: 20100315
  4. TRAZODONE HCL [Concomitant]
     Dosage: 100 MG 1 TABLET AT BEDTIME AS NEEDED
     Route: 048
     Dates: start: 20100315
  5. CLARITIN [Concomitant]
     Route: 048
     Dates: start: 20100315
  6. PHENERGAN HCL [Concomitant]
     Dosage: 25 MG 1 TABLET DAILY AS NEEDED
     Route: 048
     Dates: start: 20100315
  7. LASIX [Concomitant]
     Indication: OEDEMA
     Route: 048
     Dates: start: 20100315
  8. BENTYL [Concomitant]
     Dosage: 10 MG 1-2 CAPSULES Q 6 HR
     Route: 048
     Dates: end: 20100315
  9. SEROQUEL [Suspect]
     Route: 048
     Dates: start: 20040101, end: 20091001
  10. NAPROXEN [Concomitant]
     Indication: PAIN
     Dosage: TWICE A DAY AS NEEDED
     Route: 048
     Dates: start: 20100315
  11. ZAROXOLYN [Concomitant]
     Indication: OEDEMA
     Route: 048
     Dates: start: 20100315
  12. POTASSIUM CHLORIDE [Concomitant]
     Indication: OEDEMA
     Dates: start: 20100315
  13. BUMETANIDE [Concomitant]
     Dates: start: 20010114
  14. PRINIVIL [Concomitant]
     Indication: HYPERTENSION
     Dates: start: 20010114
  15. SEROQUEL [Suspect]
     Indication: DEPRESSION
     Route: 048
     Dates: start: 20010114
  16. SEROQUEL [Suspect]
     Route: 048
     Dates: start: 20050101
  17. PRINIVIL [Concomitant]
     Route: 048
     Dates: start: 20100315
  18. METOPROLOL TARTRATE [Concomitant]
     Indication: HYPERTENSION
     Route: 048
     Dates: start: 20100315
  19. SEROQUEL [Suspect]
     Route: 048
     Dates: start: 20050101
  20. PRILOSEC [Concomitant]
     Indication: GASTROOESOPHAGEAL REFLUX DISEASE
     Route: 048
     Dates: start: 20100315
  21. REQUIP [Concomitant]
     Indication: RESTLESS LEGS SYNDROME
     Route: 048
     Dates: start: 20100315
  22. CYMBALTA [Concomitant]
     Indication: PAIN
     Route: 048
     Dates: start: 20100315
  23. SEROQUEL [Suspect]
     Indication: ANXIETY
     Route: 048
     Dates: start: 20010114
  24. VIOXX [Concomitant]
     Dates: start: 20010114

REACTIONS (7)
  - DIABETES MELLITUS INADEQUATE CONTROL [None]
  - TYPE 2 DIABETES MELLITUS [None]
  - WEIGHT INCREASED [None]
  - OBESITY [None]
  - NEUROPATHY PERIPHERAL [None]
  - HYPERLIPIDAEMIA [None]
  - BLOOD CHOLESTEROL INCREASED [None]
